FAERS Safety Report 9563794 (Version 6)
Quarter: 2014Q4

REPORT INFORMATION
  Report Type: Spontaneous
  Country: US (occurrence: None)
  Receive Date: 20130926
  Receipt Date: 20141015
  Transmission Date: 20150529
  Serious: Yes (Other)
  Sender: FDA-Public Use
  Company Number: 2013-US-000841

PATIENT
  Age: 56 Year
  Sex: Female
  Weight: 70.3 kg

DRUGS (15)
  1. MELATONIN (MELATONIN) [Concomitant]
     Active Substance: MELATONIN
  2. XYREM [Suspect]
     Active Substance: SODIUM OXYBATE
     Indication: SOMNOLENCE
     Route: 048
     Dates: start: 200710
  3. PRIMIDONE (PRIMIDONE) [Concomitant]
  4. MAGNESIUM (MAGNESIUM) [Concomitant]
     Active Substance: MAGNESIUM
  5. LYRICA [Suspect]
     Active Substance: PREGABALIN
     Indication: PRODUCT USED FOR UNKNOWN INDICATION
  6. LASIX [Concomitant]
     Active Substance: FUROSEMIDE
  7. REGLAN [Concomitant]
     Active Substance: METOCLOPRAMIDE HYDROCHLORIDE
  8. TYLENOL [Concomitant]
     Active Substance: ACETAMINOPHEN
  9. ZYRTEC-D (CETIRIZINE HYDROCHLORIDE, PSEUDOEPHEDRINE HYDROCHLORIDE) [Concomitant]
  10. NEXIUM I.V. [Concomitant]
     Active Substance: ESOMEPRAZOLE SODIUM
  11. POTASSIUM (POTASSIUM) [Concomitant]
     Active Substance: POTASSIUM
  12. MAXALT [Concomitant]
     Active Substance: RIZATRIPTAN BENZOATE
  13. IBUPROFEN (IBUPROFEN) [Concomitant]
     Active Substance: IBUPROFEN
  14. XYREM [Suspect]
     Active Substance: SODIUM OXYBATE
     Indication: NARCOLEPSY
     Route: 048
     Dates: start: 200710
  15. INDERAL LONG ACTING (PROPRANOL HYDROCHLORIDE) [Concomitant]

REACTIONS (43)
  - Diplopia [None]
  - Breast cancer stage I [None]
  - Hot flush [None]
  - Disturbance in attention [None]
  - Somnolence [None]
  - Choking [None]
  - Hypnagogic hallucination [None]
  - Sinus congestion [None]
  - Palpitations [None]
  - Tremor [None]
  - Blood pressure increased [None]
  - Constipation [None]
  - Cough [None]
  - Arrhythmia [None]
  - Seizure [None]
  - Pharyngeal disorder [None]
  - Alopecia [None]
  - Fatigue [None]
  - Abnormal dreams [None]
  - Epilepsy [None]
  - Breast cancer [None]
  - Activities of daily living impaired [None]
  - Fluid retention [None]
  - Amnesia [None]
  - Vision blurred [None]
  - Ear infection [None]
  - Memory impairment [None]
  - Dysphagia [None]
  - Laryngeal disorder [None]
  - Migraine [None]
  - Weight increased [None]
  - Insomnia [None]
  - Chemotherapy neurotoxicity attenuation [None]
  - Gastrooesophageal reflux disease [None]
  - Sinusitis [None]
  - Laryngitis [None]
  - Tendon injury [None]
  - Skin exfoliation [None]
  - Fall [None]
  - Face injury [None]
  - Somnambulism [None]
  - Impaired work ability [None]
  - Weight decreased [None]

NARRATIVE: CASE EVENT DATE: 201106
